FAERS Safety Report 24593085 (Version 2)
Quarter: 2024Q4

REPORT INFORMATION
  Report Type: Spontaneous
  Country: US (occurrence: US)
  Receive Date: 20241108
  Receipt Date: 20241212
  Transmission Date: 20250115
  Serious: No
  Sender: ROCHE
  Company Number: US-ROCHE-10000121323

PATIENT
  Sex: Female
  Weight: 89.9 kg

DRUGS (2)
  1. OCRELIZUMAB [Suspect]
     Active Substance: OCRELIZUMAB
     Indication: Multiple sclerosis
     Dosage: EVERY 6 MONTHS.?HER LAST OCREVUS DOSE WAS ADMINISTERED ON 08-OCT-2024
     Route: 042
     Dates: start: 20230317
  2. TYLENOL [Concomitant]
     Active Substance: ACETAMINOPHEN

REACTIONS (1)
  - Maternal exposure before pregnancy [Unknown]
